FAERS Safety Report 4708454-8 (Version None)
Quarter: 2005Q3

REPORT INFORMATION
  Report Type: 
  Country: None (occurrence: None)
  Receive Date: 20050705
  Receipt Date: 20050622
  Transmission Date: 20060218
  Serious: Yes (Other)
  Sender: FDA-Public Use
  Company Number: HQ2712729JUN2001

PATIENT
  Sex: Male

DRUGS (5)
  1. PANTOLOC (PANTOPRAZOLE, INJECTION) [Suspect]
     Indication: DUODENITIS
     Dosage: SEE IMAGE
     Route: 042
     Dates: start: 20000411, end: 20000411
  2. PANTOLOC (PANTOPRAZOLE, INJECTION) [Suspect]
     Indication: GASTRITIS
     Dosage: SEE IMAGE
     Route: 042
     Dates: start: 20000411, end: 20000411
  3. PANTOLOC (PANTOPRAZOLE, INJECTION) [Suspect]
     Indication: DUODENITIS
     Dosage: SEE IMAGE
     Route: 042
     Dates: start: 20000411, end: 20000412
  4. PANTOLOC (PANTOPRAZOLE, INJECTION) [Suspect]
     Indication: GASTRITIS
     Dosage: SEE IMAGE
     Route: 042
     Dates: start: 20000411, end: 20000412
  5. ALBUTEROL SULFATE HFA [Concomitant]

REACTIONS (1)
  - CONVULSION [None]
